FAERS Safety Report 4351192-4 (Version None)
Quarter: 2004Q2

REPORT INFORMATION
  Report Type: 
  Country: None (occurrence: None)
  Receive Date: 20040428
  Receipt Date: 20030414
  Transmission Date: 20050107
  Serious: Yes (Hospitalization)
  Sender: FDA-Public Use
  Company Number: NSADSS2003018398

PATIENT
  Age: 32 Year
  Sex: Male

DRUGS (2)
  1. ULTRAM [Suspect]
     Indication: PAIN
     Dosage: ORAL
     Route: 047
     Dates: start: 20020101, end: 20030101
  2. SEROQUEL [Concomitant]

REACTIONS (2)
  - DRUG DEPENDENCE [None]
  - DRUG WITHDRAWAL SYNDROME [None]
